FAERS Safety Report 8597922-7 (Version None)
Quarter: 2012Q3

REPORT INFORMATION
  Report Type: 
  Country: None (occurrence: None)
  Receive Date: 20120816
  Receipt Date: 20120802
  Transmission Date: 20120928
  Serious: Yes (Other)
  Sender: FDA-Public Use
  Company Number: JP-ASTELLAS-2012US006956

PATIENT
  Sex: Female
  Weight: 57 kg

DRUGS (35)
  1. GEMCITABINE HYDROCHLORIDE [Suspect]
     Dosage: 1000 MG/M2, UID/QD
     Route: 041
     Dates: start: 20120411, end: 20120411
  2. DEXAMETHASONE SODIUM PHOSPHATE [Concomitant]
     Dosage: 3.3 M, UID/QD
     Route: 042
     Dates: start: 20120607, end: 20120607
  3. DEXAMETHASONE SODIUM PHOSPHATE [Concomitant]
     Dosage: 3.3 M, UID/QD
     Route: 042
     Dates: start: 20120627, end: 20120627
  4. DEXAMETHASONE SODIUM PHOSPHATE [Concomitant]
     Dosage: 3.3 M, UID/QD
     Route: 042
     Dates: start: 20120425, end: 20120425
  5. DEXAMETHASONE SODIUM PHOSPHATE [Concomitant]
     Dosage: 3.3 M, UID/QD
     Route: 042
     Dates: start: 20120530, end: 20120530
  6. DEXAMETHASONE SODIUM PHOSPHATE [Concomitant]
     Dosage: 3.3 M, UID/QD
     Route: 042
     Dates: start: 20120620, end: 20120620
  7. AMLODIPINE [Concomitant]
     Indication: PRODUCT USED FOR UNKNOWN INDICATION
     Dosage: 5 MG, UID/QD
     Route: 048
     Dates: start: 20120601
  8. ERLOTINIB HYDROCHLORIDE [Suspect]
     Dosage: 100 MG, UID/QD
     Route: 048
     Dates: start: 20120523, end: 20120703
  9. GEMCITABINE HYDROCHLORIDE [Suspect]
     Dosage: 1000 MG/M2, UID/QD
     Route: 041
     Dates: start: 20120502, end: 20120502
  10. GEMCITABINE HYDROCHLORIDE [Suspect]
     Dosage: 1000 MG/M2, UID/QD
     Route: 041
     Dates: start: 20120718
  11. LANTUS [Concomitant]
     Indication: PRODUCT USED FOR UNKNOWN INDICATION
     Dosage: 14 IU, UID/QD
     Route: 058
     Dates: start: 20120508
  12. DEXAMETHASONE SODIUM PHOSPHATE [Concomitant]
     Dosage: 3.3 M, UID/QD
     Route: 042
     Dates: start: 20120502, end: 20120502
  13. GEMCITABINE HYDROCHLORIDE [Suspect]
     Indication: ADENOCARCINOMA PANCREAS
     Dosage: 1000 MG/M2, UID/QD
     Route: 041
     Dates: start: 20120327, end: 20120327
  14. GEMCITABINE HYDROCHLORIDE [Suspect]
     Dosage: 1000 MG/M2, UID/QD
     Route: 041
     Dates: start: 20120704, end: 20120704
  15. APIDRA [Concomitant]
     Indication: PRODUCT USED FOR UNKNOWN INDICATION
     Dosage: 24 IU, UID/QD
     Route: 058
     Dates: end: 20120508
  16. DEXAMETHASONE SODIUM PHOSPHATE [Concomitant]
     Dosage: 3.3 M, UID/QD
     Route: 042
     Dates: start: 20120404, end: 20120404
  17. DEXAMETHASONE SODIUM PHOSPHATE [Concomitant]
     Dosage: 3.3 M, UID/QD
     Route: 042
     Dates: start: 20120509, end: 20120509
  18. GEMCITABINE HYDROCHLORIDE [Suspect]
     Dosage: 1000 MG/M2, UID/QD
     Route: 041
     Dates: start: 20120425, end: 20120425
  19. GEMCITABINE HYDROCHLORIDE [Suspect]
     Dosage: 1000 MG/M2, UID/QD
     Route: 041
     Dates: start: 20120509, end: 20120509
  20. DEXAMETHASONE SODIUM PHOSPHATE [Concomitant]
     Dosage: 3.3 M, UID/QD
     Route: 042
     Dates: start: 20120523, end: 20120523
  21. DEXAMETHASONE SODIUM PHOSPHATE [Concomitant]
     Dosage: 3.3 M, UID/QD
     Route: 042
     Dates: start: 20120718, end: 20120718
  22. GEMCITABINE HYDROCHLORIDE [Suspect]
     Dosage: 1000 MG/M2, UID/QD
     Route: 041
     Dates: start: 20120404, end: 20120404
  23. GEMCITABINE HYDROCHLORIDE [Suspect]
     Dosage: 1000 MG/M2, UID/QD
     Route: 041
     Dates: start: 20120523, end: 20120523
  24. GEMCITABINE HYDROCHLORIDE [Suspect]
     Dosage: 1000 MG/M2, UID/QD
     Route: 041
     Dates: start: 20120607, end: 20120607
  25. GEMCITABINE HYDROCHLORIDE [Suspect]
     Dosage: 1000 MG/M2, UID/QD
     Route: 041
     Dates: start: 20120620, end: 20120620
  26. GEMCITABINE HYDROCHLORIDE [Suspect]
     Dosage: 1000 MG/M2, UID/QD
     Route: 041
     Dates: start: 20120627, end: 20120627
  27. LANTUS [Concomitant]
     Dosage: 10 IU, UID/QD
     Dates: start: 20120509, end: 20120620
  28. ATENOLOL [Concomitant]
     Indication: PRODUCT USED FOR UNKNOWN INDICATION
     Dosage: 100 MG, UID/QD
     Route: 048
     Dates: start: 20120601
  29. LANTUS [Concomitant]
     Dosage: 6 IU, UID/QD
     Dates: start: 20120621
  30. APIDRA [Concomitant]
     Dosage: 18 IU, UID/QD
     Route: 058
     Dates: start: 20120509
  31. DEXAMETHASONE SODIUM PHOSPHATE [Concomitant]
     Dosage: 3.3 M, UID/QD
     Route: 042
     Dates: start: 20120411, end: 20120411
  32. ERLOTINIB HYDROCHLORIDE [Suspect]
     Indication: ADENOCARCINOMA PANCREAS
     Dosage: 100 MG, UID/QD
     Route: 048
     Dates: start: 20120327, end: 20120515
  33. GEMCITABINE HYDROCHLORIDE [Suspect]
     Dosage: 1000 MG/M2, UID/QD
     Route: 041
     Dates: start: 20120530, end: 20120530
  34. DEXAMETHASONE SODIUM PHOSPHATE [Concomitant]
     Indication: PROPHYLAXIS
     Dosage: 3.3 M, UID/QD
     Route: 042
     Dates: start: 20120327, end: 20120327
  35. DEXAMETHASONE SODIUM PHOSPHATE [Concomitant]
     Dosage: 3.3 M, UID/QD
     Route: 042
     Dates: start: 20120704, end: 20120704

REACTIONS (10)
  - ANAEMIA [None]
  - WHITE BLOOD CELL COUNT DECREASED [None]
  - INFECTION [None]
  - PARONYCHIA [None]
  - DRY SKIN [None]
  - RASH MACULO-PAPULAR [None]
  - DERMATITIS ACNEIFORM [None]
  - STOMATITIS [None]
  - PLATELET COUNT DECREASED [None]
  - ULCERATIVE KERATITIS [None]
